FAERS Safety Report 8012898 (Version 5)
Quarter: 2013Q3

REPORT INFORMATION
  Report Type: Report from Study
  Country: US (occurrence: US)
  Receive Date: 20110628
  Receipt Date: 20130820
  Transmission Date: 20140515
  Serious: Yes (Death)
  Sender: FDA-Public Use
  Company Number: PHHY2011US56214

PATIENT
  Age: 50 Year
  Sex: Male

DRUGS (7)
  1. GILENYA [Suspect]
     Indication: MULTIPLE SCLEROSIS
     Dosage: 0.5 MG, DAILY
     Route: 048
     Dates: start: 20110323
  2. EXTAVIA [Suspect]
  3. LEXAPRO [Concomitant]
     Indication: DEPRESSION
     Dosage: UNK UKN, UNK
  4. OPANA [Concomitant]
  5. CYMBALTA [Concomitant]
  6. SOMA [Concomitant]
  7. ADIPEX [Concomitant]

REACTIONS (2)
  - Gun shot wound [Fatal]
  - Completed suicide [Fatal]
